FAERS Safety Report 6183680-2 (Version None)
Quarter: 2009Q2

REPORT INFORMATION
  Report Type: 
  Country: None (occurrence: None)
  Receive Date: 20090508
  Receipt Date: 20090429
  Transmission Date: 20091009
  Serious: Yes (Other)
  Sender: FDA-Public Use
  Company Number: GB-TEVA-193559ISR

PATIENT
  Age: 70 Year
  Sex: Female

DRUGS (2)
  1. IBUPROFEN [Suspect]
     Route: 048
  2. DONEPEZIL HYDROCHLORIDE [Suspect]
     Route: 048
     Dates: start: 20081113, end: 20090212

REACTIONS (2)
  - DRUG INTERACTION [None]
  - GASTRIC ULCER [None]
